FAERS Safety Report 16300813 (Version 1)
Quarter: 2019Q2

REPORT INFORMATION
  Report Type: Spontaneous
  Country: FR (occurrence: FR)
  Receive Date: 20190510
  Receipt Date: 20190510
  Transmission Date: 20190711
  Serious: Yes (Hospitalization, Other)
  Sender: FDA-Public Use
  Company Number: FR-KADMON PHARMACEUTICALS, LLC-KAD201905-000314

PATIENT
  Age: 75 Year
  Sex: Female
  Weight: 50 kg

DRUGS (20)
  1. ARTELAC [Concomitant]
     Active Substance: HYPROMELLOSES
  2. CORDARONE [Suspect]
     Active Substance: AMIODARONE HYDROCHLORIDE
     Indication: ATRIAL FLUTTER
     Dosage: 200 MG, QD
     Dates: start: 20090717
  3. VITAMIN B12 [Concomitant]
     Active Substance: CYANOCOBALAMIN
  4. DACUDOSES [Concomitant]
     Active Substance: BORIC ACID\SODIUM BORATE
  5. VITAMIN A [Concomitant]
     Active Substance: VITAMIN A
  6. CORTANCYL [Concomitant]
     Active Substance: PREDNISONE
     Dates: start: 2001
  7. ETANERCEPT [Concomitant]
     Active Substance: ETANERCEPT
  8. MOPRAL [Concomitant]
     Active Substance: OMEPRAZOLE
  9. MONOPROST [Concomitant]
     Active Substance: LATANOPROST
  10. RIBAVIRIN. [Suspect]
     Active Substance: RIBAVIRIN
     Indication: CHRONIC HEPATITIS C
     Dosage: 1000 MG, QD
     Route: 048
     Dates: start: 20140822, end: 201411
  11. CORDARONE [Suspect]
     Active Substance: AMIODARONE HYDROCHLORIDE
     Indication: ARRHYTHMIA
  12. ALDACTONE [Concomitant]
     Active Substance: SPIRONOLACTONE
  13. PREVISCAN [Concomitant]
     Dates: start: 2012
  14. LEXOMIL [Concomitant]
     Active Substance: BROMAZEPAM
     Dates: start: 2010
  15. REFRESH [Concomitant]
     Active Substance: UNSPECIFIED INGREDIENT
  16. IDEOS [Concomitant]
     Active Substance: CALCIUM CARBONATE\CHOLECALCIFEROL
  17. SOFOSBUVIR [Suspect]
     Active Substance: SOFOSBUVIR
     Indication: CHRONIC HEPATITIS C
     Dosage: 400 MG, QD
     Route: 048
     Dates: start: 20140703, end: 20140703
  18. SOFOSBUVIR [Suspect]
     Active Substance: SOFOSBUVIR
     Dosage: 400 MG, QD
     Route: 048
     Dates: start: 20140822, end: 201411
  19. LEVOTHYROX [Concomitant]
     Active Substance: LEVOTHYROXINE
     Dates: start: 20100113
  20. CHOLECALCIFEROL [Concomitant]
     Active Substance: CHOLECALCIFEROL

REACTIONS (2)
  - Syncope [Recovered/Resolved]
  - Sinus node dysfunction [Recovered/Resolved]
